FAERS Safety Report 4555141-5 (Version None)
Quarter: 2005Q1

REPORT INFORMATION
  Report Type: 
  Country: None (occurrence: None)
  Receive Date: 20050118
  Receipt Date: 20030121
  Transmission Date: 20050727
  Serious: Yes (Hospitalization, Other)
  Sender: FDA-Public Use
  Company Number: US-MERCK-0301USA02085

PATIENT
  Age: 54 Year
  Sex: Female
  Weight: 64 kg

DRUGS (13)
  1. VIOXX [Suspect]
     Indication: RHEUMATOID ARTHRITIS
     Route: 048
     Dates: start: 20010214
  2. VIOXX [Suspect]
     Indication: OSTEOARTHRITIS
     Route: 048
     Dates: start: 20010214
  3. OSTEO-BI-FLEX [Concomitant]
     Route: 065
  4. ESTRACE [Concomitant]
     Route: 065
     Dates: end: 20030701
  5. VITAMINS (UNSPECIFIED) [Concomitant]
     Route: 065
  6. FLAGYL [Concomitant]
     Route: 065
  7. CIPRO [Concomitant]
     Route: 065
  8. LOTENSIN [Concomitant]
     Route: 065
  9. ZYRTEC [Concomitant]
     Route: 065
  10. DETROL [Concomitant]
     Route: 065
  11. EFFEXOR [Suspect]
     Indication: HOT FLUSH
     Route: 065
     Dates: start: 20030103
  12. EFFEXOR [Suspect]
     Route: 065
     Dates: start: 20030103
  13. VITAMIN B (UNSPECIFIED) [Concomitant]
     Route: 065

REACTIONS (48)
  - ADVERSE EVENT [None]
  - BLOOD CHOLESTEROL ABNORMAL [None]
  - BURSITIS [None]
  - CARDIAC FAILURE CONGESTIVE [None]
  - CARDIOMEGALY [None]
  - CARDIOVASCULAR DISORDER [None]
  - CHEST WALL PAIN [None]
  - CONFUSIONAL STATE [None]
  - DECREASED ACTIVITY [None]
  - DRUG HYPERSENSITIVITY [None]
  - FAECAL INCONTINENCE [None]
  - FATIGUE [None]
  - FEELING COLD [None]
  - FIBULA FRACTURE [None]
  - HEAD INJURY [None]
  - HEADACHE [None]
  - HOT FLUSH [None]
  - HYPERTENSION [None]
  - INCONTINENCE [None]
  - LARYNGITIS [None]
  - LIBIDO DECREASED [None]
  - MOOD SWINGS [None]
  - MUSCLE SPASMS [None]
  - MUSCULOSKELETAL CHEST PAIN [None]
  - MYOCARDIAL INFARCTION [None]
  - NECK INJURY [None]
  - OEDEMA [None]
  - OVARIAN CYST [None]
  - PELVIC PAIN [None]
  - PHARYNGOLARYNGEAL PAIN [None]
  - PULMONARY OEDEMA [None]
  - RENAL FAILURE [None]
  - ROTATOR CUFF SYNDROME [None]
  - SLEEP DISORDER [None]
  - STRESS [None]
  - STRESS INCONTINENCE [None]
  - TENDONITIS [None]
  - URINARY TRACT INFECTION [None]
  - VAGINAL EROSION [None]
  - VAGINAL INFECTION [None]
  - VAGINAL ODOUR [None]
  - VARICOSE VEIN [None]
  - VEIN DISORDER [None]
  - VERTIGO [None]
  - VIRAL UPPER RESPIRATORY TRACT INFECTION [None]
  - VISUAL DISTURBANCE [None]
  - VULVOVAGINAL DISCOMFORT [None]
  - WEIGHT INCREASED [None]
